FAERS Safety Report 23719295 (Version 1)
Quarter: 2024Q2

REPORT INFORMATION
  Report Type: Spontaneous
  Country: US (occurrence: US)
  Receive Date: 20240408
  Receipt Date: 20240408
  Transmission Date: 20240715
  Serious: No
  Sender: FDA-Public Use
  Company Number: US-Amarin Pharma  Inc-2024AMR000054

PATIENT
  Age: 53 Year
  Sex: Male

DRUGS (2)
  1. VASCEPA [Suspect]
     Active Substance: ICOSAPENT ETHYL
     Indication: Blood triglycerides increased
     Route: 048
  2. LISINOPRIL [Concomitant]
     Active Substance: LISINOPRIL
     Indication: Hypertension

REACTIONS (6)
  - Eructation [Not Recovered/Not Resolved]
  - Gout [Unknown]
  - Breath odour [Unknown]
  - Poor quality product administered [Unknown]
  - Product after taste [Unknown]
  - Product colour issue [Unknown]
